FAERS Safety Report 10801354 (Version 2)
Quarter: 2015Q2

REPORT INFORMATION
  Report Type: Report from Study
  Country: JP (occurrence: JP)
  Receive Date: 20150217
  Receipt Date: 20150626
  Transmission Date: 20150821
  Serious: Yes (Hospitalization, Other)
  Sender: FDA-Public Use
  Company Number: JP-AMGEN-JPNNI2014102388

PATIENT
  Age: 74 Year
  Sex: Female
  Weight: 43.7 kg

DRUGS (18)
  1. MAGMITT [Concomitant]
     Active Substance: MAGNESIUM OXIDE
     Indication: CONSTIPATION
     Dosage: 330 MG, TID
     Route: 048
  2. BIO-THREE [Concomitant]
     Active Substance: HERBALS
     Indication: DYSBACTERIOSIS
     Dosage: 1 DF, TID
     Route: 048
  3. FLUOROURACIL. [Suspect]
     Active Substance: FLUOROURACIL
     Dosage: 2000 MG/M2, Q2WEEKS
     Route: 041
  4. KENALOG [Concomitant]
     Active Substance: TRIAMCINOLONE ACETONIDE
     Indication: STOMATITIS
     Dosage: UNK, 2-3 TIMES/DAY, OPTIMAL DOSE, PRN
     Route: 050
     Dates: start: 20141211
  5. DAIKENCHUTO [Concomitant]
     Active Substance: HERBALS
     Indication: CONSTIPATION
     Dosage: 2.5 MG, TID
     Route: 048
  6. FLUOROURACIL. [Suspect]
     Active Substance: FLUOROURACIL
     Indication: COLON CANCER
     Dosage: 400 MG/M2, Q2WEEKS
     Route: 040
     Dates: start: 20141023
  7. HIRUDOID                           /00723701/ [Concomitant]
     Indication: DERMATITIS ACNEIFORM
     Dosage: UNK, 2-3 TIMES/DAY
     Route: 062
     Dates: start: 20141106
  8. LOCOID [Concomitant]
     Active Substance: HYDROCORTISONE BUTYRATE
     Indication: DERMATITIS ACNEIFORM
     Dosage: UNK, BID
     Route: 062
     Dates: start: 20141120
  9. ARTIST [Concomitant]
     Active Substance: CARVEDILOL
     Indication: HYPERTENSION
     Dosage: 20 MG, QD
     Route: 048
  10. OXALIPLATIN. [Suspect]
     Active Substance: OXALIPLATIN
     Dosage: 65 MG/M2, Q2WEEKS
     Route: 041
  11. RINDERON V [Concomitant]
     Active Substance: BETAMETHASONE VALERATE
     Indication: DERMATITIS ACNEIFORM
     Dosage: UNK,1-2 TIMES/DAY, OPTIMAL DOSE, PRN
     Route: 062
     Dates: start: 20141127
  12. FLUOROURACIL. [Suspect]
     Active Substance: FLUOROURACIL
     Dosage: 200 MG/M2, Q2WEEKS
     Route: 040
  13. PROPETO [Concomitant]
     Indication: DERMATITIS ACNEIFORM
     Dosage: UNK, 2-3 TIMES/DAY
     Route: 062
     Dates: start: 20141106
  14. PANITUMUMAB [Suspect]
     Active Substance: PANITUMUMAB
     Indication: COLON CANCER
     Dosage: 6 MG/KG, Q2WEEKS
     Route: 041
     Dates: start: 20141023
  15. FLUOROURACIL. [Suspect]
     Active Substance: FLUOROURACIL
     Dosage: 2400 MG/M2, Q2WEEKS
     Route: 041
     Dates: start: 20141023
  16. FLUOROURACIL. [Suspect]
     Active Substance: FLUOROURACIL
     Dosage: 200 MG/M2, Q2WEEKS
     Route: 040
  17. FLUOROURACIL. [Suspect]
     Active Substance: FLUOROURACIL
     Dosage: 2000 MG/M2, Q2WEEKS
     Route: 041
  18. OXALIPLATIN. [Suspect]
     Active Substance: OXALIPLATIN
     Indication: COLON CANCER
     Dosage: 85 MG/M2, Q2WEEKS
     Route: 041
     Dates: start: 20141023

REACTIONS (3)
  - Sepsis [Recovered/Resolved]
  - Urinary tract infection [Recovered/Resolved]
  - Neutrophil count decreased [Unknown]

NARRATIVE: CASE EVENT DATE: 20141120
